FAERS Safety Report 19684307 (Version 1)
Quarter: 2021Q3

REPORT INFORMATION
  Report Type: Spontaneous
  Country: US (occurrence: US)
  Receive Date: 20210810
  Receipt Date: 20210810
  Transmission Date: 20211014
  Serious: Yes (Life-Threatening, Hospitalization, Disabling)
  Sender: FDA-Public Use
  Company Number: None

PATIENT
  Age: 58 Year
  Sex: Female
  Weight: 45 kg

DRUGS (1)
  1. BOTOX [Suspect]
     Active Substance: ONABOTULINUMTOXINA
     Indication: MIGRAINE
     Dosage: ?          OTHER ROUTE:INJECTED INTO NERVES + MUSCLES AROUND?
     Dates: start: 20210701, end: 20210701

REACTIONS (4)
  - Influenza like illness [None]
  - Blood glucose decreased [None]
  - Cerebrovascular accident [None]
  - Chest pain [None]

NARRATIVE: CASE EVENT DATE: 20210804
